FAERS Safety Report 13804744 (Version 3)
Quarter: 2017Q4

REPORT INFORMATION
  Report Type: Spontaneous
  Country: US (occurrence: US)
  Receive Date: 20170728
  Receipt Date: 20171128
  Transmission Date: 20180320
  Serious: No
  Sender: FDA-Public Use
  Company Number: US-009507513-1707USA010358

PATIENT
  Sex: Male

DRUGS (5)
  1. PROVENTIL [Concomitant]
     Active Substance: ALBUTEROL
  2. VITAMIN B COMPLEX [Concomitant]
     Active Substance: CYANOCOBALAMIN\DEXPANTHENOL\NIACINAMIDE\PYRIDOXINE HYDROCHLORIDE\RIBOFLAVIN 5^-PHOSPHATE SODIUM\THIAMINE HYDROCHLORIDE\VITAMIN B COMPLEX
  3. ZEPATIER [Suspect]
     Active Substance: ELBASVIR\GRAZOPREVIR
     Indication: HEPATITIS C
     Dosage: (TOTAL DAILY DOSE 50-100MG); TAKE 1 TABLET BY MOUTH EVERY DAY
     Route: 048
     Dates: start: 201706
  4. AMLODIPINE BESYLATE. [Concomitant]
     Active Substance: AMLODIPINE BESYLATE
  5. FLOVENT HFA [Concomitant]
     Active Substance: FLUTICASONE PROPIONATE

REACTIONS (1)
  - Fatigue [Recovered/Resolved]

NARRATIVE: CASE EVENT DATE: 2017
